FAERS Safety Report 16033416 (Version 1)
Quarter: 2019Q1

REPORT INFORMATION
  Report Type: Report from Study
  Country: JP (occurrence: JP)
  Receive Date: 20190305
  Receipt Date: 20190305
  Transmission Date: 20190418
  Serious: Yes (Other)
  Sender: FDA-Public Use
  Company Number: JP-SA-2018SA197804

PATIENT
  Age: 66 Year
  Sex: Male
  Weight: 59.1 kg

DRUGS (13)
  1. GRAN [Suspect]
     Active Substance: FILGRASTIM
     Dosage: 200 UG/M2, BID
     Route: 065
     Dates: start: 20170310, end: 20170312
  2. AMLODIPINE [Concomitant]
     Active Substance: AMLODIPINE BESYLATE
     Indication: PLASMA CELL MYELOMA
     Dosage: 2.5 MG
     Route: 048
  3. LANSOPRAZOLE ABBOTT [Concomitant]
     Indication: PLASMA CELL MYELOMA
     Dosage: 15 MG
     Route: 048
  4. CALCIUM LACTATE [Concomitant]
     Active Substance: CALCIUM LACTATE
     Indication: PLASMA CELL MYELOMA
     Dosage: 2 G
     Route: 048
  5. CALONAL [Concomitant]
     Active Substance: ACETAMINOPHEN
     Indication: PLASMA CELL MYELOMA
     Dosage: 1800 MG, QD
     Route: 048
  6. PLERIXAFOR [Suspect]
     Active Substance: PLERIXAFOR
     Indication: HAEMATOPOIETIC STEM CELL MOBILISATION
     Dosage: 14 MG, QD
     Route: 058
     Dates: start: 20170312, end: 20170312
  7. LYRICA [Concomitant]
     Active Substance: PREGABALIN
     Indication: PLASMA CELL MYELOMA
     Dosage: 100 MG
     Route: 048
  8. VICCLOX [ACICLOVIR SODIUM] [Concomitant]
     Indication: PLASMA CELL MYELOMA
     Dosage: 200 MG, QD
     Route: 048
  9. GRAN [Suspect]
     Active Substance: FILGRASTIM
     Indication: HAEMATOPOIETIC STEM CELL MOBILISATION
     Dosage: 200 UG/M2, QD
     Route: 065
     Dates: start: 20170313, end: 20170313
  10. MAGNESIUM OXIDE. [Concomitant]
     Active Substance: MAGNESIUM OXIDE
     Indication: PLASMA CELL MYELOMA
     Dosage: 660 MG, QD
     Route: 048
  11. XYZAL [Concomitant]
     Active Substance: LEVOCETIRIZINE DIHYDROCHLORIDE
     Indication: PLASMA CELL MYELOMA
     Dosage: 5 MG
     Route: 048
  12. GRAN [Suspect]
     Active Substance: FILGRASTIM
     Dosage: 200 UG/M2, QD
     Route: 065
     Dates: start: 20170309, end: 20170309
  13. ALFACALCIDOL [Concomitant]
     Active Substance: ALFACALCIDOL
     Indication: PLASMA CELL MYELOMA
     Dosage: 1 UG
     Route: 048

REACTIONS (4)
  - Thrombocytopenia [Recovered/Resolved]
  - Blood lactate dehydrogenase increased [Recovered/Resolved]
  - Leukocytosis [Recovered/Resolved]
  - Hyperuricaemia [Recovered/Resolved]

NARRATIVE: CASE EVENT DATE: 20170313
